FAERS Safety Report 25569028 (Version 1)
Quarter: 2025Q3

REPORT INFORMATION
  Report Type: Spontaneous
  Country: GB (occurrence: GB)
  Receive Date: 20250716
  Receipt Date: 20250716
  Transmission Date: 20251021
  Serious: Yes (Hospitalization, Disabling, Other)
  Sender: DR REDDYS
  Company Number: None

PATIENT
  Age: 83 Year
  Sex: Female
  Weight: 74 kg

DRUGS (4)
  1. RIVAROXABAN [Suspect]
     Active Substance: RIVAROXABAN
     Indication: Deep vein thrombosis
     Dosage: ONE TO BE TAKEN EACH DAY
     Dates: start: 20250207, end: 20250709
  2. Hydrocortisone 1% / Miconazole 2% cream [Concomitant]
     Indication: Product used for unknown indication
     Dates: start: 20250611
  3. NITROFURANTOIN [Concomitant]
     Active Substance: NITROFURANTOIN
     Indication: Product used for unknown indication
     Dates: start: 20250611
  4. Hydromol ointment (Alliance Pharmaceuticals Ltd) [Concomitant]
     Indication: Product used for unknown indication
     Dates: start: 20250611

REACTIONS (4)
  - Facial paralysis [Recovering/Resolving]
  - Aphasia [Recovering/Resolving]
  - Confusional state [Recovering/Resolving]
  - Subarachnoid haemorrhage [Recovering/Resolving]

NARRATIVE: CASE EVENT DATE: 20250619
